FAERS Safety Report 4977072-9 (Version None)
Quarter: 2006Q2

REPORT INFORMATION
  Report Type: 
  Country: None (occurrence: None)
  Receive Date: 20060412
  Receipt Date: 20060402
  Transmission Date: 20061013
  Serious: No
  Sender: FDA-Public Use
  Company Number: 06H-163-0307011-00

PATIENT

DRUGS (8)
  1. ETOPOSIDE [Suspect]
     Indication: CHEMOTHERAPY
     Dosage: 0.4 MILLIGRAM/MILLILITERS; INTRAVENOUS INFUSION
     Route: 042
  2. CYCLOPHOSPHAMIDE [Suspect]
     Indication: CHEMOTHERAPY
     Dosage: 600 MG/M2, EVERY 12 HOURS FOR DAYS 1-5, INTRAVENOUS INFUSION
     Route: 042
  3. MESNA [Concomitant]
  4. SODIUM CHLORIDE [Concomitant]
  5. ANTIEMETIC (ANTIEMETICS AND ANTINAUSEANTS) [Concomitant]
  6. NEUPOGEN [Concomitant]
  7. PERIDEX (CHLORHEXIDINE GLUCONATE) [Concomitant]
  8. AMPHOTERICIN B [Concomitant]

REACTIONS (3)
  - CARDIAC TAMPONADE [None]
  - DRUG TOXICITY [None]
  - PERICARDITIS [None]
